FAERS Safety Report 7669145-7 (Version None)
Quarter: 2011Q3

REPORT INFORMATION
  Report Type: 
  Country: None (occurrence: None)
  Receive Date: 20110808
  Receipt Date: 20110727
  Transmission Date: 20111222
  Serious: Yes (Other)
  Sender: FDA-Public Use
  Company Number: PHHY2011JP68015

PATIENT
  Age: 16 Year
  Sex: Male

DRUGS (2)
  1. TEGRETOL [Suspect]
     Dosage: UNK UKN, UNK
  2. PHENYTOIN [Suspect]
     Dosage: UNK UKN, UNK

REACTIONS (3)
  - GINGIVAL HYPERPLASIA [None]
  - GINGIVITIS [None]
  - AFFECT LABILITY [None]
